FAERS Safety Report 21476596 (Version 1)
Quarter: 2022Q4

REPORT INFORMATION
  Report Type: Report from Study
  Country: US (occurrence: US)
  Receive Date: 20221019
  Receipt Date: 20221019
  Transmission Date: 20230113
  Serious: No
  Sender: FDA-Public Use
  Company Number: US-ABBVIE-4138461

PATIENT
  Sex: Male

DRUGS (1)
  1. IMBRUVICA [Suspect]
     Active Substance: IBRUTINIB
     Indication: Waldenstrom^s macroglobulinaemia
     Route: 048
     Dates: start: 202112

REACTIONS (5)
  - Amnesia [Unknown]
  - Diarrhoea [Recovering/Resolving]
  - Contusion [Recovering/Resolving]
  - Visual impairment [Recovering/Resolving]
  - Muscular weakness [Unknown]
